FAERS Safety Report 7120708-7 (Version None)
Quarter: 2010Q4

REPORT INFORMATION
  Report Type: 
  Country: None (occurrence: None)
  Receive Date: 20101124
  Receipt Date: 20101101
  Transmission Date: 20110411
  Serious: Yes (Hospitalization)
  Sender: FDA-Public Use
  Company Number: US-BAYER-201033753NA

PATIENT
  Age: 34 Year
  Sex: Female
  Weight: 75 kg

DRUGS (11)
  1. YAZ [Suspect]
     Indication: PRODUCT USED FOR UNKNOWN INDICATION
     Dates: start: 20041101, end: 20050101
  2. YASMIN [Suspect]
     Indication: ACNE
     Dates: start: 20040801, end: 20050101
  3. OCELLA [Suspect]
     Indication: PRODUCT USED FOR UNKNOWN INDICATION
     Dates: start: 20041101, end: 20050101
  4. ZELNORM [Concomitant]
     Indication: IRRITABLE BOWEL SYNDROME
     Dates: start: 20040801
  5. AUGMENTIN XR [Concomitant]
     Indication: SINUSITIS
     Dosage: 2 TAB DOR 10 DAYS
     Route: 048
     Dates: start: 20040823
  6. TESTOSTERONE [Concomitant]
     Indication: BREAST TENDERNESS
     Route: 061
     Dates: start: 20040810
  7. ZOLOFT [Concomitant]
     Indication: MOOD SWINGS
     Route: 048
     Dates: start: 20040414
  8. WELLBUTRIN [Concomitant]
     Dates: start: 20040112
  9. EFFEXOR XR [Concomitant]
     Indication: MOOD SWINGS
  10. VIOXX [Concomitant]
  11. ALEVE (CAPLET) [Concomitant]

REACTIONS (12)
  - ABDOMINAL DISTENSION [None]
  - ABDOMINAL PAIN UPPER [None]
  - ANAL FISSURE [None]
  - ANORECTAL DISCOMFORT [None]
  - BILIARY DYSKINESIA [None]
  - DIVERTICULUM [None]
  - DYSGEUSIA [None]
  - DYSPEPSIA [None]
  - FLATULENCE [None]
  - MIDDLE INSOMNIA [None]
  - NAUSEA [None]
  - RECTAL HAEMORRHAGE [None]
